FAERS Safety Report 6541125-4 (Version None)
Quarter: 2010Q1

REPORT INFORMATION
  Report Type: 
  Country: None (occurrence: None)
  Receive Date: 20100118
  Receipt Date: 20091214
  Transmission Date: 20100710
  Serious: Yes (Death, Hospitalization, Other)
  Sender: FDA-Public Use
  Company Number: FR-BAYER-200914105GPV

PATIENT
  Age: 78 Year
  Sex: Male

DRUGS (2)
  1. NEXAVAR [Suspect]
     Indication: HEPATIC NEOPLASM MALIGNANT
     Dosage: TOTAL DAILY DOSE: 800 MG
     Route: 048
     Dates: start: 20081215
  2. NEXAVAR [Suspect]
     Dosage: TOTAL DAILY DOSE: 200 MG
     Route: 048
     Dates: start: 20090120, end: 20090201

REACTIONS (4)
  - COMA HEPATIC [None]
  - DIARRHOEA [None]
  - HAEMATURIA [None]
  - WEIGHT DECREASED [None]
